FAERS Safety Report 8916608 (Version 1)
Quarter: 2012Q4

REPORT INFORMATION
  Report Type: 
  Country: GB (occurrence: GB)
  Receive Date: 20121120
  Receipt Date: 20121120
  Transmission Date: 20130627
  Serious: Yes (Other)
  Sender: FDA-Public Use
  Company Number: GB-WATSON-2012-19745

PATIENT
  Age: 75 Year
  Sex: Female

DRUGS (1)
  1. SIMVASTATIN (UNKNOWN) [Suspect]
     Indication: PRODUCT USED FOR UNKNOWN INDICATION
     Dosage: 40 mg, daily, Taken at night, had reduced to 20mg for an unknown period
     Route: 065
     Dates: start: 20120529

REACTIONS (4)
  - Hallucination [Recovered/Resolved]
  - Abnormal behaviour [Recovered/Resolved]
  - Panic reaction [Not Recovered/Not Resolved]
  - Middle insomnia [Not Recovered/Not Resolved]
